FAERS Safety Report 20310356 (Version 5)
Quarter: 2022Q1

REPORT INFORMATION
  Report Type: Spontaneous
  Country: FR (occurrence: FR)
  Receive Date: 20220107
  Receipt Date: 20220310
  Transmission Date: 20220423
  Serious: Yes (Hospitalization, Other)
  Sender: FDA-Public Use
  Company Number: FR-BRISTOL-MYERS SQUIBB COMPANY-BMS-2022-001372

PATIENT
  Age: 84 Year
  Sex: Male
  Weight: 95 kg

DRUGS (3)
  1. OPDIVO [Suspect]
     Active Substance: NIVOLUMAB
     Indication: Pleural mesothelioma malignant
     Dosage: 360 MG, Q3WK (240 MG /24 ML 1 VIAL, 40 MG/4ML 3 VIALS)
     Route: 042
     Dates: start: 20211202, end: 20211224
  2. OPDIVO [Suspect]
     Active Substance: NIVOLUMAB
     Dosage: 240 MG /24 ML 1 VIAL, 40 MG/4ML 3 VIALS
     Route: 065
     Dates: start: 20211223, end: 20220120
  3. YERVOY [Suspect]
     Active Substance: IPILIMUMAB
     Indication: Pleural mesothelioma malignant
     Dosage: 1 MILLIGRAM/KILOGRAM, Q6WK (50 MG/10ML 2 VIALS)
     Route: 042
     Dates: start: 20211202, end: 20220120

REACTIONS (3)
  - Myocardial infarction [Unknown]
  - Malignant neoplasm progression [Unknown]
  - Drug ineffective [Unknown]

NARRATIVE: CASE EVENT DATE: 20211224
